FAERS Safety Report 17931483 (Version 3)
Quarter: 2020Q3

REPORT INFORMATION
  Report Type: Spontaneous
  Country: FI (occurrence: FI)
  Receive Date: 20200623
  Receipt Date: 20200701
  Transmission Date: 20201103
  Serious: Yes (Other)
  Sender: FDA-Public Use
  Company Number: FI-009507513-2006FIN000386

PATIENT
  Age: 55 Year
  Sex: Female

DRUGS (2)
  1. ELOCON [Suspect]
     Active Substance: MOMETASONE FUROATE
     Dosage: TUBE WAS 100 GRAMS, 2 TIMES PER DAY
  2. ELOCON [Suspect]
     Active Substance: MOMETASONE FUROATE
     Indication: DERMATITIS ALLERGIC
     Dosage: 2 TIMES PER DAY
     Dates: start: 2000

REACTIONS (8)
  - Contracted bladder [Not Recovered/Not Resolved]
  - Product container issue [Unknown]
  - Eczema [Unknown]
  - Product prescribing issue [Unknown]
  - Skin irritation [Unknown]
  - Affective disorder [Not Recovered/Not Resolved]
  - Wrong technique in product usage process [Unknown]
  - Accidental exposure to product [Unknown]

NARRATIVE: CASE EVENT DATE: 2000
